FAERS Safety Report 8458368-5 (Version None)
Quarter: 2012Q2

REPORT INFORMATION
  Report Type: 
  Country: None (occurrence: None)
  Receive Date: 20120323
  Receipt Date: 20111116
  Transmission Date: 20120825
  Serious: Yes (Other)
  Sender: FDA-Public Use
  Company Number: 163-21880-11103285

PATIENT
  Age: 76 Year
  Sex: Male
  Weight: 112.0385 kg

DRUGS (12)
  1. LENALIDOMIDE [Suspect]
     Indication: MULTIPLE MYELOMA
     Dosage: 15 MG, DAILY X 21 / 7 DAYS, PO
     Route: 048
     Dates: start: 20111006, end: 20111013
  2. AVODART [Concomitant]
  3. AMIODARONE HCL [Concomitant]
  4. SULFAMETH (SULFAMETHOXAZOLE) [Concomitant]
  5. METOPROLOL TARTRATE [Concomitant]
  6. DOXAZOSINE (DOXAZOSINE) [Concomitant]
  7. LEVOTHYROXINE SODIUM [Concomitant]
  8. DEXAMETHASONE [Concomitant]
  9. OXYCODONE HCL [Concomitant]
  10. ACYCLOVIR [Concomitant]
  11. WARFARIN SODIUM [Concomitant]
  12. VELCADE [Concomitant]

REACTIONS (3)
  - ERYTHEMA [None]
  - RASH [None]
  - PRURITUS [None]
